FAERS Safety Report 5011370-8 (Version None)
Quarter: 2006Q2

REPORT INFORMATION
  Report Type: 
  Country: None (occurrence: None)
  Receive Date: 20060523
  Receipt Date: 20060508
  Transmission Date: 20061013
  Serious: No
  Sender: FDA-Public Use
  Company Number: 2006JP001135

PATIENT
  Age: 50 Year
  Sex: Female

DRUGS (11)
  1. PROGRAF [Suspect]
     Indication: PANCREAS ISLET CELL TRANSPLANT
     Dosage: 1 MG, BID, ORAL
     Route: 048
     Dates: start: 20030207
  2. CEFAZOLIN [Suspect]
     Dosage: 1 G, TID, IV DRIP
     Route: 041
  3. VALACICLOVIR          (VALACICLOVIR HYDROCHLORIDE) [Suspect]
     Indication: ANTIVIRAL PROPHYLAXIS
     Dosage: 166 MG, TID, ORAL
     Route: 048
     Dates: start: 20030502
  4. SIROLIMUS (SIROLIMUS) [Concomitant]
  5. ZENAPAX [Concomitant]
  6. IMIPENEM (IMIPENEM) INJECTION [Concomitant]
  7. COTRIMOXAZOL (SULFAMETHOXAZOLE, TRIMETHOPRIM) PER ORAL NOS [Concomitant]
  8. VITAMIN E (HERBAL OIL NOS) PER ORAL NOS [Concomitant]
  9. VITAMIN B6 PER ORAL NOS [Concomitant]
  10. VITAMIN A (RETINOL PALMITATE) PER ORAL NOS [Concomitant]
  11. HEPARIN [Concomitant]

REACTIONS (3)
  - ALANINE AMINOTRANSFERASE INCREASED [None]
  - GAMMA-GLUTAMYLTRANSFERASE INCREASED [None]
  - GLOMERULAR FILTRATION RATE DECREASED [None]
